FAERS Safety Report 5997255-9 (Version None)
Quarter: 2008Q4

REPORT INFORMATION
  Report Type: 
  Country: None (occurrence: None)
  Receive Date: 20081212
  Receipt Date: 20081106
  Transmission Date: 20090506
  Serious: No
  Sender: FDA-Public Use
  Company Number: US-ABBOTT-08P-163-0486403-00

PATIENT
  Sex: Male
  Weight: 81.72 kg

DRUGS (5)
  1. HUMIRA [Suspect]
     Indication: CROHN'S DISEASE
     Dates: end: 20080918
  2. MESALAMINE [Concomitant]
     Indication: CROHN'S DISEASE
  3. ATORVASTATIN CALCIUM [Concomitant]
     Indication: BLOOD CHOLESTEROL INCREASED
  4. FENTANYL TRANSDERMAL SYSTEM [Concomitant]
     Indication: PAIN
  5. FENTANYL TRANSDERMAL SYSTEM [Concomitant]
     Indication: CROHN'S DISEASE

REACTIONS (4)
  - ARTHRALGIA [None]
  - JOINT SWELLING [None]
  - RASH [None]
  - SYSTEMIC LUPUS ERYTHEMATOSUS [None]
